FAERS Safety Report 19949402 (Version 1)
Quarter: 2021Q4

REPORT INFORMATION
  Report Type: Spontaneous
  Country: US (occurrence: US)
  Receive Date: 20211012
  Receipt Date: 20211012
  Transmission Date: 20220304
  Serious: Yes (Hospitalization)
  Sender: FDA-Public Use
  Company Number: None

PATIENT
  Age: 45 Year
  Sex: Female
  Weight: 82.35 kg

DRUGS (2)
  1. ZOSYN [Suspect]
     Active Substance: PIPERACILLIN SODIUM\TAZOBACTAM SODIUM
  2. Zoysn [Concomitant]
     Dates: start: 20210907, end: 20210907

REACTIONS (3)
  - Drug hypersensitivity [None]
  - Anaphylactic reaction [None]
  - Loss of consciousness [None]

NARRATIVE: CASE EVENT DATE: 20210907
